FAERS Safety Report 15346090 (Version 1)
Quarter: 2018Q3

REPORT INFORMATION
  Report Type: Spontaneous
  Country: US (occurrence: US)
  Receive Date: 20180904
  Receipt Date: 20180904
  Transmission Date: 20181010
  Serious: No
  Sender: FDA-Public Use
  Company Number: US-GLENMARK PHARMACEUTICALS-2018GMK036509

PATIENT

DRUGS (3)
  1. ZYRTEC [Concomitant]
     Active Substance: CETIRIZINE HYDROCHLORIDE
     Indication: SEASONAL ALLERGY
     Dosage: 10 MG, OD
     Route: 048
     Dates: start: 20180619
  2. MUPIROCIN. [Suspect]
     Active Substance: MUPIROCIN
     Indication: EPISTAXIS
     Dosage: USED TWICE, TID
     Route: 045
     Dates: start: 20180710, end: 20180711
  3. MUPIROCIN. [Suspect]
     Active Substance: MUPIROCIN
     Indication: SEASONAL ALLERGY

REACTIONS (8)
  - Incorrect route of drug administration [Unknown]
  - Drug dispensing error [Unknown]
  - Application site warmth [Not Recovered/Not Resolved]
  - Product use in unapproved indication [Unknown]
  - Application site pain [Not Recovered/Not Resolved]
  - Diarrhoea [Recovering/Resolving]
  - Application site pruritus [Not Recovered/Not Resolved]
  - Application site erythema [Not Recovered/Not Resolved]

NARRATIVE: CASE EVENT DATE: 20180710
